FAERS Safety Report 9649605 (Version 1)
Quarter: 2013Q4

REPORT INFORMATION
  Report Type: Report from Study
  Country: US (occurrence: US)
  Receive Date: 20131028
  Receipt Date: 20131028
  Transmission Date: 20140711
  Serious: Yes (Other)
  Sender: FDA-Public Use
  Company Number: US-ABBVIE-13P-163-1159497-00

PATIENT
  Age: 76 Year
  Sex: Female
  Weight: 68.1 kg

DRUGS (15)
  1. ZEMPLAR [Suspect]
     Indication: NEPHROPATHY
     Dates: start: 20090427
  2. ZEMPLAR [Suspect]
     Dates: start: 20090427
  3. PROGRAF [Concomitant]
     Indication: PROPHYLAXIS AGAINST TRANSPLANT REJECTION
  4. CELLCEPT [Concomitant]
     Indication: PROPHYLAXIS AGAINST TRANSPLANT REJECTION
  5. PREDNISONE [Concomitant]
     Indication: PROPHYLAXIS AGAINST TRANSPLANT REJECTION
  6. ALLOPURINOL [Concomitant]
     Indication: GOUT
  7. NORPACE [Concomitant]
     Indication: HYPERTENSION
  8. ATENOLOL [Concomitant]
     Indication: HYPERTENSION
  9. ATENOLOL [Concomitant]
     Indication: HEART RATE IRREGULAR
  10. ASPIRIN [Concomitant]
     Indication: CARDIAC DISORDER
  11. ZANTAC [Concomitant]
     Indication: GASTRIC PH DECREASED
  12. PROCARDIA [Concomitant]
     Indication: CARDIAC DISORDER
  13. PRAVASTATIN [Concomitant]
     Indication: BLOOD CHOLESTEROL INCREASED
  14. MAGNESIUM OXIDE [Concomitant]
     Indication: CARDIAC DISORDER
  15. FISH OIL W/VITAMIN D NOS [Concomitant]
     Indication: VITAMIN SUPPLEMENTATION

REACTIONS (3)
  - Back pain [Recovered/Resolved]
  - Sciatica [Recovered/Resolved]
  - Arthralgia [Recovering/Resolving]
